FAERS Safety Report 9240854 (Version 1)
Quarter: 2013Q2

REPORT INFORMATION
  Report Type: Spontaneous
  Country: US (occurrence: US)
  Receive Date: 20130418
  Receipt Date: 20130418
  Transmission Date: 20140414
  Serious: No
  Sender: FDA-Public Use
  Company Number: US-009507513-1304USA008592

PATIENT
  Sex: 0

DRUGS (2)
  1. SINGULAIR [Suspect]
  2. CLARITIN [Suspect]

REACTIONS (1)
  - Respiratory tract congestion [Unknown]
